FAERS Safety Report 6407157-1 (Version None)
Quarter: 2009Q4

REPORT INFORMATION
  Report Type: 
  Country: None (occurrence: None)
  Receive Date: 20091020
  Receipt Date: 20091008
  Transmission Date: 20100525
  Serious: Yes (Death)
  Sender: FDA-Public Use
  Company Number: DE-WYE-H11186409

PATIENT
  Sex: Male

DRUGS (12)
  1. AMIODARONE [Suspect]
     Indication: ATRIAL FIBRILLATION
     Route: 048
     Dates: start: 19990101, end: 20090522
  2. AMIODARONE [Suspect]
     Indication: TACHYCARDIA
  3. ENALAPRIL MALEATE [Concomitant]
     Route: 048
  4. EUTHROID-1 [Concomitant]
     Route: 048
  5. FLUCTIN [Concomitant]
     Route: 048
  6. MARCUMAR [Suspect]
     Dosage: 3 MG TABLET DOSE NOT PROVIDED
     Route: 048
  7. PULMICORT [Concomitant]
     Route: 055
  8. ALBUTEROL [Concomitant]
     Route: 055
  9. SPIRONOLACTONE [Concomitant]
     Route: 048
  10. CLINDAMYCIN [Suspect]
     Route: 048
  11. ATROVENT [Concomitant]
     Route: 055
  12. FUROSEMIDE [Concomitant]
     Route: 048

REACTIONS (13)
  - BLOOD CREATININE INCREASED [None]
  - BLOOD POTASSIUM INCREASED [None]
  - BLOOD UREA INCREASED [None]
  - CYANOSIS [None]
  - ENDOCARDITIS STAPHYLOCOCCAL [None]
  - HAEMOGLOBIN DECREASED [None]
  - HEPATIC FAILURE [None]
  - LIPASE INCREASED [None]
  - MULTI-ORGAN FAILURE [None]
  - PLEURAL EFFUSION [None]
  - VENTRICULAR FLUTTER [None]
  - VENTRICULAR TACHYCARDIA [None]
  - WHITE BLOOD CELL COUNT INCREASED [None]
